FAERS Safety Report 14211182 (Version 1)
Quarter: 2017Q4

REPORT INFORMATION
  Report Type: Spontaneous
  Country: US (occurrence: None)
  Receive Date: 20171121
  Receipt Date: 20171121
  Transmission Date: 20180321
  Serious: Yes (Life-Threatening, Disabling, Other)
  Sender: FDA-Public Use
  Company Number: None

PATIENT
  Age: 72 Year
  Sex: Female
  Weight: 65.77 kg

DRUGS (7)
  1. MULTI-VIT+MINERALS [Concomitant]
  2. SYNTHROID [Concomitant]
     Active Substance: LEVOTHYROXINE SODIUM
  3. OMEPRAZOLE. [Concomitant]
     Active Substance: OMEPRAZOLE
  4. ALENDRONATE [Concomitant]
     Active Substance: ALENDRONATE SODIUM
  5. CARBAMAZEPINE 200MG [Suspect]
     Active Substance: CARBAMAZEPINE
     Indication: SEIZURE
     Dosage: 2 TAB BID AND AS NEEDED UP TO 10/DAY; TWICE DAILY AND PRN BY MOUTH
     Route: 048
     Dates: start: 20170516, end: 20171002
  6. PRESERVISION [Concomitant]
     Active Substance: MINERALS\VITAMINS
  7. PREDNISOLONE. [Concomitant]
     Active Substance: PREDNISOLONE

REACTIONS (10)
  - Toxicity to various agents [None]
  - Headache [None]
  - Diarrhoea [None]
  - Muscle spasms [None]
  - Vision blurred [None]
  - Visual acuity reduced [None]
  - Product substitution issue [None]
  - Dizziness [None]
  - Insomnia [None]
  - Extra dose administered [None]

NARRATIVE: CASE EVENT DATE: 20170920
